FAERS Safety Report 5646576-8 (Version None)
Quarter: 2008Q1

REPORT INFORMATION
  Report Type: 
  Country: None (occurrence: None)
  Receive Date: 20080227
  Receipt Date: 20080215
  Transmission Date: 20080703
  Serious: Yes (Death)
  Sender: FDA-Public Use
  Company Number: 100#03#2008-00784

PATIENT
  Age: 48 Year
  Sex: Male

DRUGS (8)
  1. SERTRALINE [Suspect]
     Indication: DRUG USE FOR UNKNOWN INDICATION
     Dosage: ORAL
     Route: 048
  2. ACETAMINOPHEN + CODEINE(TABLETS) (ACETAMINOPHEN + CODEINE) [Suspect]
     Indication: DRUG USE FOR UNKNOWN INDICATION
     Dosage: 30-60 MG CODEINE,  ORAL
     Route: 048
  3. LORAZEPAM [Suspect]
     Indication: DRUG USE FOR UNKNOWN INDICATION
     Dosage: ORAL
     Route: 048
  4. PARACETAMOL(TABLETS) (PARACETAMOL) [Concomitant]
  5. BISACODYL (BISACODYL) [Concomitant]
  6. MORPHINE [Concomitant]
  7. MORPHINE [Concomitant]
  8. CLONAZEPAM [Concomitant]

REACTIONS (4)
  - DRUG TOXICITY [None]
  - PULMONARY OEDEMA [None]
  - RESPIRATORY DEPRESSION [None]
  - SEROTONIN SYNDROME [None]
